FAERS Safety Report 4984729-2 (Version None)
Quarter: 2006Q2

REPORT INFORMATION
  Report Type: 
  Country: None (occurrence: None)
  Receive Date: 20060426
  Receipt Date: 20060426
  Transmission Date: 20061013
  Serious: Yes (Hospitalization)
  Sender: FDA-Public Use
  Company Number: None

PATIENT
  Sex: Male
  Weight: 90.7194 kg

DRUGS (2)
  1. HUMULIN 70/30 [Suspect]
     Indication: DIABETES MELLITUS
     Dosage: 32 UNITS AM 20 UNITS PM
     Dates: start: 20060130, end: 20060323
  2. METFORMIN [Suspect]
     Indication: DIABETES MELLITUS
     Dosage: 1000 MG BID
     Dates: start: 20050802

REACTIONS (1)
  - HYPOGLYCAEMIA [None]
